FAERS Safety Report 6210672-7 (Version None)
Quarter: 2009Q2

REPORT INFORMATION
  Report Type: 
  Country: None (occurrence: None)
  Receive Date: 20090527
  Receipt Date: 20090512
  Transmission Date: 20091009
  Serious: Yes (Death, Hospitalization)
  Sender: FDA-Public Use
  Company Number: 2009AL003194

PATIENT
  Age: 54 Year
  Sex: Male

DRUGS (24)
  1. DIGOXIN [Suspect]
     Indication: CARDIAC DISORDER
     Dosage: 0.125MG, DAILY, PO
     Route: 048
     Dates: start: 20000101
  2. LIPITOR [Concomitant]
  3. WELLUTRIN [Concomitant]
  4. NICOTINE [Concomitant]
  5. FISH OIL [Concomitant]
  6. PAXIL [Concomitant]
  7. POTASSIUM CHLORIDE [Concomitant]
  8. NORVASC [Concomitant]
  9. MUCINEX [Concomitant]
  10. ASPIRIN [Concomitant]
  11. FUROSEMIDE [Concomitant]
  12. ATENOLOL [Concomitant]
  13. TOPROL-XL [Concomitant]
  14. GEMFIBROZIL [Concomitant]
  15. PREDNISONE [Concomitant]
  16. CELEXA [Concomitant]
  17. TRICOR [Concomitant]
  18. ALLEGRA [Concomitant]
  19. MERTOPOLOL [Concomitant]
  20. AMIODARONE HCL [Concomitant]
  21. ADVAIR HFA [Concomitant]
  22. XANAX [Concomitant]
  23. NITROGLYCERIN [Concomitant]
  24. MORPHINE [Concomitant]

REACTIONS (7)
  - ACUTE RESPIRATORY FAILURE [None]
  - CARDIAC FAILURE CONGESTIVE [None]
  - DYSPNOEA [None]
  - EMOTIONAL DISTRESS [None]
  - INJURY [None]
  - MALAISE [None]
  - RENAL FAILURE ACUTE [None]
